FAERS Safety Report 5392760-0 (Version None)
Quarter: 2007Q3

REPORT INFORMATION
  Report Type: 
  Country: None (occurrence: None)
  Receive Date: 20070720
  Receipt Date: 20070705
  Transmission Date: 20080115
  Serious: Yes (Other)
  Sender: FDA-Public Use
  Company Number: DE-PFIZER INC-2007040327

PATIENT
  Sex: Male
  Weight: 82 kg

DRUGS (3)
  1. MACUGEN [Suspect]
     Indication: MACULAR DEGENERATION
     Route: 031
     Dates: start: 20070301, end: 20070401
  2. ALL OTHER THERAPEUTIC PRODUCTS [Suspect]
  3. ANAESTHETICS FOR TOPICAL USE [Suspect]

REACTIONS (4)
  - EYE PAIN [None]
  - INJECTION SITE PAIN [None]
  - NAUSEA [None]
  - PRESYNCOPE [None]
